FAERS Safety Report 15747968 (Version 1)
Quarter: 2018Q4

REPORT INFORMATION
  Report Type: Spontaneous
  Country: FR (occurrence: FR)
  Receive Date: 20181221
  Receipt Date: 20181221
  Transmission Date: 20190205
  Serious: Yes (Hospitalization)
  Sender: FDA-Public Use
  Company Number: FR-009507513-1509FRA012955

PATIENT
  Age: 79 Year
  Sex: Male

DRUGS (5)
  1. STALEVO [Suspect]
     Active Substance: CARBIDOPA\ENTACAPONE\LEVODOPA
     Indication: PARKINSON^S DISEASE
     Dosage: 5 DF, QD; STRENGTH: 150/37.5/200 MG
     Route: 048
     Dates: end: 2015
  2. STALEVO [Suspect]
     Active Substance: CARBIDOPA\ENTACAPONE\LEVODOPA
     Dosage: 3 DF, QD; STRENGTH: 125/25/200 MG
     Route: 048
     Dates: start: 2015
  3. MODOPAR [Suspect]
     Active Substance: BENSERAZIDE HYDROCHLORIDE\LEVODOPA
     Indication: PARKINSON^S DISEASE
     Dosage: UNK, IF NEEDED
     Route: 048
     Dates: end: 20150615
  4. SINEMET L.P. [Suspect]
     Active Substance: CARBIDOPA\LEVODOPA
     Indication: PARKINSON^S DISEASE
     Dosage: 1 DF, QPM
     Route: 048
     Dates: end: 20150615
  5. AZILECT [Suspect]
     Active Substance: RASAGILINE MESYLATE
     Dosage: 20 MG, QD
     Route: 048

REACTIONS (8)
  - Loss of consciousness [Recovered/Resolved]
  - Blood pressure fluctuation [Recovered/Resolved]
  - Dyskinesia [Recovered/Resolved]
  - Malaise [Recovered/Resolved]
  - Akinesia [Recovered/Resolved]
  - Extrapyramidal disorder [Recovered/Resolved]
  - Orthostatic hypotension [Recovered/Resolved]
  - Dizziness [Recovered/Resolved]

NARRATIVE: CASE EVENT DATE: 201505
